FAERS Safety Report 25281009 (Version 3)
Quarter: 2025Q2

REPORT INFORMATION
  Report Type: Spontaneous
  Country: US (occurrence: US)
  Receive Date: 20250508
  Receipt Date: 20250612
  Transmission Date: 20250717
  Serious: Yes (Life-Threatening, Other)
  Sender: ALEXION PHARMACEUTICALS
  Company Number: US-AstraZeneca-CH-00863824A

PATIENT
  Age: 49 Year
  Weight: 68.027 kg

DRUGS (4)
  1. ULTOMIRIS [Suspect]
     Active Substance: RAVULIZUMAB-CWVZ
     Indication: Myasthenia gravis
     Dosage: UNK, Q8W
  2. PREDNISONE [Concomitant]
     Active Substance: PREDNISONE
     Route: 065
  3. MESTINON [Concomitant]
     Active Substance: PYRIDOSTIGMINE BROMIDE
     Route: 065
  4. CAMZYOS [Concomitant]
     Active Substance: MAVACAMTEN
     Route: 065

REACTIONS (1)
  - Cardiomyopathy [Recovered/Resolved]
